FAERS Safety Report 7597571-3 (Version None)
Quarter: 2011Q3

REPORT INFORMATION
  Report Type: 
  Country: None (occurrence: None)
  Receive Date: 20110708
  Receipt Date: 20110627
  Transmission Date: 20111222
  Serious: Yes (Other)
  Sender: FDA-Public Use
  Company Number: AU-JNJFOC-20110310897

PATIENT
  Sex: Female

DRUGS (4)
  1. REMICADE [Suspect]
     Indication: HIDRADENITIS
     Route: 042
     Dates: start: 20110324
  2. REMICADE [Suspect]
     Route: 042
     Dates: start: 20110502
  3. ZOLOFT [Concomitant]
     Route: 065
  4. DUROMINE [Concomitant]
     Route: 065

REACTIONS (6)
  - HIDRADENITIS [None]
  - BRONCHITIS [None]
  - COUGH [None]
  - INFLUENZA LIKE ILLNESS [None]
  - ALOPECIA [None]
  - ARTHRALGIA [None]
